FAERS Safety Report 23849881 (Version 3)
Quarter: 2025Q1

REPORT INFORMATION
  Report Type: Spontaneous
  Country: AT (occurrence: AT)
  Receive Date: 20240513
  Receipt Date: 20250317
  Transmission Date: 20250408
  Serious: Yes (Other)
  Sender: ALMUS
  Company Number: AT-ALMIRALL-AT-2024-1066

PATIENT
  Sex: Male

DRUGS (2)
  1. KLISYRI [Suspect]
     Active Substance: TIRBANIBULIN
     Indication: Actinic keratosis
     Dates: start: 20240301, end: 20240305
  2. Bepanthen plus [Concomitant]

REACTIONS (1)
  - Squamous cell carcinoma [Recovered/Resolved]
